FAERS Safety Report 5772909-8 (Version None)
Quarter: 2008Q2

REPORT INFORMATION
  Report Type: 
  Country: None (occurrence: None)
  Receive Date: 20080613
  Receipt Date: 20080604
  Transmission Date: 20081010
  Serious: Yes (Other)
  Sender: FDA-Public Use
  Company Number: US-PFIZER INC-2008045801

PATIENT
  Sex: Female
  Weight: 93 kg

DRUGS (6)
  1. CHANTIX [Suspect]
     Indication: EX-SMOKER
     Dates: start: 20080422, end: 20080531
  2. NORVASC [Suspect]
     Indication: CARDIAC DISORDER
  3. IMDUR [Suspect]
     Indication: CARDIAC DISORDER
  4. SIMVASTATIN [Suspect]
  5. LISINOPRIL [Concomitant]
  6. ASPIRIN [Concomitant]

REACTIONS (2)
  - ACTIVITIES OF DAILY LIVING IMPAIRED [None]
  - WEIGHT INCREASED [None]
